FAERS Safety Report 8715923 (Version 2)
Quarter: 2012Q4

REPORT INFORMATION
  Report Type: Report from Study
  Country: US (occurrence: US)
  Receive Date: 20120809
  Receipt Date: 20121108
  Transmission Date: 20130627
  Serious: Yes (Hospitalization)
  Sender: FDA-Public Use
  Company Number: US-ABBOTT-12P-163-0963367-00

PATIENT
  Age: 77 None
  Sex: Female
  Weight: 52.66 kg

DRUGS (1)
  1. HUMIRA 40 MG/0.8 ML PEN [Suspect]
     Indication: CROHN^S DISEASE
     Route: 058
     Dates: start: 20110725

REACTIONS (10)
  - Feeling abnormal [Unknown]
  - Dehydration [Unknown]
  - Dehydration [Unknown]
  - Erythema [Unknown]
  - Erythema [Unknown]
  - Oedema peripheral [Unknown]
  - Gait disturbance [Unknown]
  - Localised infection [Unknown]
  - Wound secretion [Unknown]
  - Cellulitis [Unknown]
